FAERS Safety Report 14609910 (Version 1)
Quarter: 2018Q1

REPORT INFORMATION
  Report Type: Spontaneous
  Country: CN (occurrence: CN)
  Receive Date: 20180307
  Receipt Date: 20180307
  Transmission Date: 20180509
  Serious: Yes (Other)
  Sender: FDA-Public Use
  Company Number: CN-PFIZER INC-2018090227

PATIENT
  Age: 88 Year
  Sex: Female
  Weight: 55 kg

DRUGS (1)
  1. METHYLPREDNISOLONE. [Suspect]
     Active Substance: METHYLPREDNISOLONE
     Indication: CHRONIC OBSTRUCTIVE PULMONARY DISEASE
     Dosage: 16 MG, 1X/DAY
     Route: 048
     Dates: start: 20171227, end: 20171228

REACTIONS (4)
  - Somnolence [Recovering/Resolving]
  - Disorganised speech [Recovering/Resolving]
  - Delirium [Recovering/Resolving]
  - Product use in unapproved indication [Recovered/Resolved]

NARRATIVE: CASE EVENT DATE: 20171227
